FAERS Safety Report 23687318 (Version 4)
Quarter: 2024Q4

REPORT INFORMATION
  Report Type: Spontaneous
  Country: JP (occurrence: JP)
  Receive Date: 20240329
  Receipt Date: 20241204
  Transmission Date: 20250114
  Serious: No
  Sender: AMGEN
  Company Number: JP-AMGEN-JPNSP2024061210

PATIENT
  Age: 68 Year
  Sex: Male

DRUGS (4)
  1. BLINCYTO [Suspect]
     Active Substance: BLINATUMOMAB
     Indication: B precursor type acute leukaemia
     Dosage: 9 MICROGRAM, QD, DRIP INFUSION
     Route: 042
     Dates: start: 20230626, end: 20230702
  2. BLINCYTO [Suspect]
     Active Substance: BLINATUMOMAB
     Dosage: UNK
     Route: 042
     Dates: start: 20230807
  3. SPRYCEL [Concomitant]
     Active Substance: DASATINIB
     Route: 048
  4. SULFAMETHOXAZOLE\TRIMETHOPRIM [Concomitant]
     Active Substance: SULFAMETHOXAZOLE\TRIMETHOPRIM

REACTIONS (5)
  - Blood immunoglobulin G decreased [Recovering/Resolving]
  - Cytomegalovirus infection [Recovered/Resolved]
  - Weight decreased [Not Recovered/Not Resolved]
  - Nausea [Unknown]
  - Hiccups [Unknown]

NARRATIVE: CASE EVENT DATE: 20231017
